FAERS Safety Report 10150325 (Version 3)
Quarter: 2014Q4

REPORT INFORMATION
  Report Type: Report from Study
  Country: US (occurrence: US)
  Receive Date: 20140502
  Receipt Date: 20141124
  Transmission Date: 20150528
  Serious: Yes (Hospitalization)
  Sender: FDA-Public Use
  Company Number: PHHO2014US004069

PATIENT
  Age: 79 Year
  Sex: Female
  Weight: 64.4 kg

DRUGS (2)
  1. TKI258 [Suspect]
     Active Substance: DOVITINIB LACTATE
     Indication: CHOLANGIOCARCINOMA
     Dosage: 500 MG, QD(5 DAYS ON, 2 DAYS OFF)
     Route: 048
     Dates: start: 20140314, end: 20140317
  2. LORAZEPAM SANDOZ [Suspect]
     Active Substance: LORAZEPAM
     Indication: PROPHYLAXIS OF NAUSEA AND VOMITING
     Dosage: 0.5 MG, QHS
     Route: 048
     Dates: start: 20140314, end: 20140316

REACTIONS (1)
  - Encephalopathy [Recovered/Resolved]

NARRATIVE: CASE EVENT DATE: 20140317
